FAERS Safety Report 9550227 (Version 1)
Quarter: 2013Q3

REPORT INFORMATION
  Report Type: Spontaneous
  Country: US (occurrence: US)
  Receive Date: 20130924
  Receipt Date: 20130924
  Transmission Date: 20140515
  Serious: No
  Sender: FDA-Public Use
  Company Number: US-SANOFI-AVENTIS-2013SA063316

PATIENT
  Age: 67 Year
  Sex: Female
  Weight: 58.51 kg

DRUGS (12)
  1. AUBAGIO [Suspect]
     Indication: MULTIPLE SCLEROSIS
     Route: 048
     Dates: start: 20130613, end: 20130621
  2. AUBAGIO [Suspect]
     Indication: MULTIPLE SCLEROSIS
     Route: 048
     Dates: start: 20130624
  3. FOLIC ACID [Concomitant]
  4. REBIF [Concomitant]
  5. CARVEDILOL [Concomitant]
     Indication: CARDIAC DISORDER
  6. SIMVASTATIN [Concomitant]
  7. NITROFURANTOIN [Concomitant]
  8. FAMPRIDINE [Concomitant]
  9. PROVIGIL [Concomitant]
  10. LOSARTAN [Concomitant]
  11. ASPIRIN [Concomitant]
  12. TAMSULOSIN [Concomitant]

REACTIONS (4)
  - Drooling [Recovered/Resolved]
  - Conjunctivitis [Unknown]
  - Balance disorder [Recovered/Resolved]
  - Fall [Recovered/Resolved]
